FAERS Safety Report 9349629 (Version 5)
Quarter: 2014Q2

REPORT INFORMATION
  Report Type: Spontaneous
  Country: JP (occurrence: JP)
  Receive Date: 20130614
  Receipt Date: 20140409
  Transmission Date: 20141212
  Serious: Yes (Death, Hospitalization)
  Sender: FDA-Public Use
  Company Number: JP-ELI_LILLY_AND_COMPANY-JP201306001521

PATIENT
  Age: 64 Year
  Sex: Male

DRUGS (5)
  1. ALIMTA [Suspect]
     Indication: LUNG ADENOCARCINOMA
     Dosage: 680 MG, UNK
     Route: 042
     Dates: start: 20121113, end: 20130328
  2. PARAPLATIN [Suspect]
     Indication: LUNG ADENOCARCINOMA
     Dosage: UNK
     Route: 042
     Dates: end: 201301
  3. BEVACIZUMAB [Concomitant]
     Indication: LUNG ADENOCARCINOMA
     Dosage: UNK
     Route: 065
     Dates: start: 20121204, end: 20130116
  4. FOLIC ACID [Concomitant]
     Route: 048
  5. VITAMIN B12 [Concomitant]
     Route: 030

REACTIONS (1)
  - Thrombotic thrombocytopenic purpura [Fatal]
